FAERS Safety Report 6058658-X (Version None)
Quarter: 2009Q1

REPORT INFORMATION
  Report Type: 
  Country: None (occurrence: None)
  Receive Date: 20090130
  Receipt Date: 20090119
  Transmission Date: 20090719
  Serious: Yes (Hospitalization)
  Sender: FDA-Public Use
  Company Number: FR-PFIZER INC-2009158391

PATIENT

DRUGS (1)
  1. ZYVOXID [Suspect]
     Indication: STAPHYLOCOCCAL INFECTION
     Dosage: 1200 MG, EVERY DAY
     Route: 048
     Dates: start: 20081128, end: 20081201

REACTIONS (1)
  - MYOCLONUS [None]
